FAERS Safety Report 4487740-3 (Version None)
Quarter: 2004Q4

REPORT INFORMATION
  Report Type: 
  Country: None (occurrence: None)
  Receive Date: 20041025
  Receipt Date: 20041008
  Transmission Date: 20050328
  Serious: No
  Sender: FDA-Public Use
  Company Number: 9049

PATIENT
  Age: 14 Year
  Sex: Male

DRUGS (7)
  1. METHOTREXATE [Suspect]
     Indication: JUVENILE ARTHRITIS
     Dosage: 20 MG WEEKL.Y SC
     Route: 058
     Dates: start: 20020530, end: 20040831
  2. INFLIXIMAB [Concomitant]
  3. NAPROXEN [Concomitant]
  4. PREDNISOLONE [Concomitant]
  5. LANSOPRAZOLE [Concomitant]
  6. FOLIC ACID [Concomitant]
  7. CALCIUM [Concomitant]

REACTIONS (8)
  - ARTHRALGIA [None]
  - EMOTIONAL DISTRESS [None]
  - FEELING COLD [None]
  - HEADACHE [None]
  - MUSCULOSKELETAL STIFFNESS [None]
  - OEDEMA PERIPHERAL [None]
  - PYREXIA [None]
  - VOMITING [None]
